FAERS Safety Report 10273601 (Version 1)
Quarter: 2014Q3

REPORT INFORMATION
  Report Type: Spontaneous
  Country: US (occurrence: US)
  Receive Date: 20140702
  Receipt Date: 20140702
  Transmission Date: 20150326
  Serious: Yes (Other)
  Sender: FDA-Public Use
  Company Number: US-ACTAVIS-2014-14061

PATIENT
  Age: 58 Year
  Sex: Male
  Weight: 120 kg

DRUGS (3)
  1. COUMADIN [Concomitant]
     Active Substance: WARFARIN SODIUM
     Indication: ANTICOAGULANT THERAPY
     Dosage: UNK, DAILY
     Route: 048
  2. MORPHINE SULFATE (AELLC) [Suspect]
     Active Substance: MORPHINE SULFATE
     Indication: PAIN
     Dosage: 1 DF, DAILY
     Route: 048
     Dates: start: 20140617
  3. KEFLEX [Concomitant]
     Active Substance: CEPHALEXIN
     Indication: CELLULITIS
     Dosage: UNK, BID
     Route: 048

REACTIONS (6)
  - Overdose [Not Recovered/Not Resolved]
  - Fatigue [Not Recovered/Not Resolved]
  - Disorientation [Not Recovered/Not Resolved]
  - Dyspnoea [Not Recovered/Not Resolved]
  - Somnolence [Not Recovered/Not Resolved]
  - Feeling abnormal [Not Recovered/Not Resolved]

NARRATIVE: CASE EVENT DATE: 20140618
